FAERS Safety Report 15987149 (Version 2)
Quarter: 2019Q1

REPORT INFORMATION
  Report Type: Report from Study
  Country: US (occurrence: US)
  Receive Date: 20190220
  Receipt Date: 20190327
  Transmission Date: 20190418
  Serious: Yes (Hospitalization)
  Sender: FDA-Public Use
  Company Number: US-ACTELION-A-NJ2019-185971

PATIENT
  Age: 88 Year
  Sex: Female
  Weight: 46.71 kg

DRUGS (24)
  1. ARFORMOTEROL TARTRATE [Concomitant]
     Active Substance: ARFORMOTEROL TARTRATE
  2. FUROSEMIDE. [Concomitant]
     Active Substance: FUROSEMIDE
     Dosage: 20 MG, BID
  3. IPRATROPIUM [Concomitant]
     Active Substance: IPRATROPIUM
     Dosage: UNK, TID
  4. TOPROL XL [Concomitant]
     Active Substance: METOPROLOL SUCCINATE
  5. OMEPRAZOLE. [Concomitant]
     Active Substance: OMEPRAZOLE
     Dosage: 20 MG
  6. AMOXICILLIN. [Concomitant]
     Active Substance: AMOXICILLIN
  7. ALBUTEROL SULFATE. [Concomitant]
     Active Substance: ALBUTEROL SULFATE
     Dosage: 180 MCG
  8. DOCUSATE SODIUM. [Concomitant]
     Active Substance: DOCUSATE SODIUM
     Dosage: 100 MG, QD
  9. BUMEX [Concomitant]
     Active Substance: BUMETANIDE
  10. ATORVASTATIN [Concomitant]
     Active Substance: ATORVASTATIN
     Dosage: 20 MG, QD
  11. POTASSIUM CHLORIDE. [Concomitant]
     Active Substance: POTASSIUM CHLORIDE
     Dosage: 10 MEQ
  12. SODIUM CHLORIDE. [Concomitant]
     Active Substance: SODIUM CHLORIDE
  13. BROVANA [Concomitant]
     Active Substance: ARFORMOTEROL TARTRATE
     Dosage: UNK, BID
  14. DENOSUMAB [Concomitant]
     Active Substance: DENOSUMAB
     Dosage: 60 MG
  15. PROPYLENE GLYCOL [Concomitant]
     Active Substance: PROPYLENE GLYCOL
  16. OPSUMIT [Suspect]
     Active Substance: MACITENTAN
     Indication: PULMONARY HYPERTENSION
     Dosage: 10 MG, QD
     Route: 048
     Dates: start: 20190121
  17. SPIRONOLACTONE. [Concomitant]
     Active Substance: SPIRONOLACTONE
     Dosage: 25 MG, QD
  18. LORATADINE. [Concomitant]
     Active Substance: LORATADINE
     Dosage: 10 MG, QD
  19. WARFARIN SODIUM. [Concomitant]
     Active Substance: WARFARIN SODIUM
  20. LORAZEPAM. [Concomitant]
     Active Substance: LORAZEPAM
     Dosage: 0.5 MG, BID
  21. IPRATROPIUM BROMIDE. [Concomitant]
     Active Substance: IPRATROPIUM BROMIDE
     Dosage: 0.5 MG
  22. MULTIVITAMIN AND MINERAL SUPPLEMENT [Concomitant]
     Active Substance: MINERALS\VITAMINS
  23. METOPROLOL SUCCINATE. [Concomitant]
     Active Substance: METOPROLOL SUCCINATE
  24. VENTOLIN HFA [Concomitant]
     Active Substance: ALBUTEROL SULFATE

REACTIONS (50)
  - Weight increased [Unknown]
  - Dyspnoea exertional [Unknown]
  - Atrial fibrillation [Unknown]
  - Tricuspid valve incompetence [Unknown]
  - Hyponatraemia [Recovering/Resolving]
  - Anticoagulation drug level below therapeutic [Recovering/Resolving]
  - Dyspnoea [Unknown]
  - Hypervolaemia [Recovering/Resolving]
  - Acute kidney injury [Recovering/Resolving]
  - Monocyte count increased [Unknown]
  - Blood creatinine increased [Unknown]
  - Vitamin B12 increased [Unknown]
  - Renal disorder [Unknown]
  - Chronic obstructive pulmonary disease [Unknown]
  - Hypoxia [Unknown]
  - Epistaxis [Unknown]
  - Occult blood positive [Unknown]
  - Pulmonary oedema [Unknown]
  - Hyperlipidaemia [Unknown]
  - Gastrooesophageal reflux disease [Unknown]
  - Haematochezia [Unknown]
  - Haptoglobin decreased [Unknown]
  - Glomerular filtration rate decreased [Unknown]
  - Blood folate abnormal [Unknown]
  - Fluid retention [Unknown]
  - Pulmonary hypertension [Unknown]
  - Rales [Recovering/Resolving]
  - Mean cell volume abnormal [Unknown]
  - Eosinophil count increased [Unknown]
  - Light chain analysis increased [Unknown]
  - Mitral valve calcification [Unknown]
  - Aspiration pleural cavity [Unknown]
  - Atrial enlargement [Unknown]
  - Pulmonary arterial pressure abnormal [Unknown]
  - Haematocrit decreased [Unknown]
  - Brain natriuretic peptide increased [Unknown]
  - Adverse reaction [Unknown]
  - Cardiac failure congestive [Unknown]
  - Muscle spasms [Unknown]
  - Anaemia [Unknown]
  - Cardiorenal syndrome [Recovering/Resolving]
  - Pleural effusion [Unknown]
  - Coronary artery disease [Unknown]
  - Red blood cell count decreased [Unknown]
  - Haemoglobin decreased [Unknown]
  - Lymphocyte count decreased [Unknown]
  - Serum ferritin increased [Unknown]
  - Blood lactate dehydrogenase increased [Unknown]
  - Mitral valve incompetence [Unknown]
  - Malaise [Unknown]

NARRATIVE: CASE EVENT DATE: 20190206
